FAERS Safety Report 17450649 (Version 1)
Quarter: 2020Q1

REPORT INFORMATION
  Report Type: Spontaneous
  Country: FR (occurrence: FR)
  Receive Date: 20200224
  Receipt Date: 20200224
  Transmission Date: 20200409
  Serious: Yes (Hospitalization, Other)
  Sender: FDA-Public Use
  Company Number: NVSC2020FR049255

PATIENT
  Age: 54 Year
  Sex: Female

DRUGS (11)
  1. CLONAZEPAM. [Suspect]
     Active Substance: CLONAZEPAM
     Indication: MANIA
  2. LOXAPAC [Suspect]
     Active Substance: LOXAPINE
     Indication: HALLUCINATION
  3. LOXAPAC [Suspect]
     Active Substance: LOXAPINE
     Indication: MANIA
     Dosage: 50 MG, QD
     Route: 065
     Dates: start: 201901, end: 2019
  4. OLANZAPINE. [Suspect]
     Active Substance: OLANZAPINE
     Indication: DELUSION
  5. OLANZAPINE. [Suspect]
     Active Substance: OLANZAPINE
     Indication: MANIA
  6. CLONAZEPAM. [Suspect]
     Active Substance: CLONAZEPAM
     Indication: HALLUCINATION
     Dosage: 3.5 MG, QD
     Route: 065
     Dates: start: 201901, end: 2019
  7. MYCOPHENOLATE MOFETIL. [Concomitant]
     Active Substance: MYCOPHENOLATE MOFETIL
     Indication: SYSTEMIC LUPUS ERYTHEMATOSUS
     Dosage: 2 G, QD
     Route: 065
     Dates: start: 2015, end: 2019
  8. OLANZAPINE. [Suspect]
     Active Substance: OLANZAPINE
     Indication: HALLUCINATION
     Dosage: 40 MG, QD
     Route: 065
     Dates: start: 201901, end: 2019
  9. CLONAZEPAM. [Suspect]
     Active Substance: CLONAZEPAM
     Indication: DELUSION
  10. LOXAPAC [Suspect]
     Active Substance: LOXAPINE
     Indication: DELUSION
  11. PREDNISOLONE. [Concomitant]
     Active Substance: PREDNISOLONE
     Indication: SYSTEMIC LUPUS ERYTHEMATOSUS
     Dosage: 5 MG, QD
     Route: 065
     Dates: start: 2015, end: 2019

REACTIONS (3)
  - Catatonia [Recovering/Resolving]
  - Acute respiratory distress syndrome [Unknown]
  - Psychotic disorder due to a general medical condition [Recovering/Resolving]

NARRATIVE: CASE EVENT DATE: 2019
